FAERS Safety Report 7547043-7 (Version None)
Quarter: 2011Q2

REPORT INFORMATION
  Report Type: 
  Country: None (occurrence: None)
  Receive Date: 20110607
  Receipt Date: 20110527
  Transmission Date: 20111010
  Serious: Yes (Hospitalization)
  Sender: FDA-Public Use
  Company Number: 2011SP005927

PATIENT
  Age: 33 Year
  Sex: Female
  Weight: 70.3075 kg

DRUGS (3)
  1. NUVARING [Suspect]
     Indication: PREMENSTRUAL SYNDROME
     Dates: start: 20020101, end: 20030101
  2. NUVARING [Suspect]
     Indication: PREMENSTRUAL SYNDROME
     Dates: start: 20080101, end: 20090301
  3. SYNTHROID [Concomitant]

REACTIONS (7)
  - BIPOLAR DISORDER [None]
  - PSORIASIS [None]
  - OVARIAN CYST [None]
  - DEPRESSION [None]
  - DEEP VEIN THROMBOSIS [None]
  - ATTENTION DEFICIT/HYPERACTIVITY DISORDER [None]
  - ANXIETY [None]
